FAERS Safety Report 9218685 (Version 1)
Quarter: 2013Q2

REPORT INFORMATION
  Report Type: Report from Study
  Country: JP (occurrence: JP)
  Receive Date: 20130409
  Receipt Date: 20130409
  Transmission Date: 20140414
  Serious: Yes (Hospitalization)
  Sender: FDA-Public Use
  Company Number: JP-009507513-1304JPN001359

PATIENT
  Age: 63 Year
  Sex: Male
  Weight: 82 kg

DRUGS (19)
  1. PEGINTRON [Suspect]
     Indication: CHRONIC HEPATITIS C
     Dosage: 1.5 MICROGRAM PER KILOGRAM, QW
     Route: 058
     Dates: start: 20120925, end: 20121120
  2. PEGINTRON [Suspect]
     Dosage: 1.0 MICROGRAM PER KILOGRAM, QW
     Route: 058
     Dates: start: 20121121, end: 20121226
  3. PEGINTRON [Suspect]
     Dosage: 1.0 MICROGRAM PER KILOGRAM, QW
     Route: 058
     Dates: start: 20130116, end: 20130219
  4. PEGINTRON [Suspect]
     Dosage: 0.75 MICROGRAM PER KILOGRAM, QW
     Dates: start: 20130220, end: 20130226
  5. PEGINTRON [Suspect]
     Dosage: 1.0 MICROGRAM PER KILOGRAM, QW
     Dates: start: 20130227
  6. REBETOL [Suspect]
     Indication: CHRONIC HEPATITIS C
     Dosage: 800 MG, QD
     Route: 048
     Dates: start: 20120925, end: 20121016
  7. REBETOL [Suspect]
     Dosage: 600 MG, QD
     Route: 048
     Dates: start: 20121017, end: 20121023
  8. REBETOL [Suspect]
     Dosage: 400 MG, QD
     Route: 048
     Dates: start: 20121024, end: 20121226
  9. REBETOL [Suspect]
     Dosage: 400 MG, QD
     Route: 048
     Dates: start: 20130116
  10. TELAVIC [Suspect]
     Indication: CHRONIC HEPATITIS C
     Dosage: 2250 MG, QD
     Route: 048
     Dates: start: 20120925, end: 20121004
  11. TELAVIC [Suspect]
     Dosage: 1500 MG, QD
     Route: 048
     Dates: start: 20121005, end: 20121127
  12. TELAVIC [Suspect]
     Dosage: 1500 MG, QD
     Route: 048
     Dates: start: 20121212, end: 20130106
  13. RESTAMIN [Suspect]
     Indication: ADVERSE EVENT
     Dosage: UNK, QS, QD
     Route: 061
     Dates: start: 20121114, end: 20121128
  14. URSO [Concomitant]
     Indication: CHRONIC HEPATITIS C
     Dosage: 900 MG, QD
     Route: 048
  15. NORVASC [Concomitant]
     Indication: HYPERTENSION
     Dosage: 5 MG, QD
     Route: 048
  16. VESICARE [Concomitant]
     Dosage: 5 MG, QD
     Route: 048
     Dates: end: 20121024
  17. MYSLEE [Concomitant]
     Indication: INSOMNIA
     Dosage: 10 MG, QD
     Route: 048
  18. NEXIUM [Concomitant]
     Indication: DIABETES MELLITUS
     Dosage: 20 MG, QD
     Route: 048
  19. ZYLORIC [Concomitant]
     Dosage: 100 MG, QD
     Route: 048

REACTIONS (1)
  - Cellulitis [Recovered/Resolved]
